FAERS Safety Report 9422984 (Version 2)
Quarter: 2013Q3

REPORT INFORMATION
  Report Type: Spontaneous
  Country: CO (occurrence: None)
  Receive Date: 20130717
  Receipt Date: 20130909
  Transmission Date: 20140515
  Serious: Yes (Other)
  Sender: FDA-Public Use
  Company Number: 2013036906

PATIENT
  Age: 54 Year
  Sex: Male

DRUGS (1)
  1. HUMAN IMMUNOGLOBULIN G [Suspect]
     Indication: CRANIAL NERVE DISORDER

REACTIONS (16)
  - Drug ineffective [None]
  - Diplegia [None]
  - Ophthalmoplegia [None]
  - Cranial nerve disorder [None]
  - Ataxia [None]
  - Areflexia [None]
  - Eyelid ptosis [None]
  - Diplopia [None]
  - Hypoaesthesia [None]
  - Asthenia [None]
  - Dysphonia [None]
  - Salivary hypersecretion [None]
  - Dysphagia [None]
  - Respiratory rate increased [None]
  - Guillain-Barre syndrome [None]
  - Chest discomfort [None]
